FAERS Safety Report 23331771 (Version 1)
Quarter: 2023Q4

REPORT INFORMATION
  Report Type: Spontaneous
  Country: None (occurrence: US)
  Receive Date: 20231222
  Receipt Date: 20231222
  Transmission Date: 20240109
  Serious: Yes (Other)
  Sender: FDA-Public Use
  Company Number: US-The Proactiv LLC-2149660

PATIENT
  Age: 69 Year
  Sex: Female

DRUGS (4)
  1. PROACTIV SOLUTION RENEWING CLEANSER [Suspect]
     Active Substance: BENZOYL PEROXIDE
     Route: 061
     Dates: start: 20080101, end: 20231206
  2. PROACTIV SPF 15 MOISTURIZER [Suspect]
     Active Substance: OCTINOXATE\ZINC OXIDE
     Route: 061
     Dates: start: 20080101, end: 20231206
  3. PROACTIV REVITALIZING TONER COMBINATION THERAPY ACNE TREATMENT [Suspect]
     Active Substance: SALICYLIC ACID
     Route: 061
     Dates: start: 20080101, end: 20231206
  4. PROACTIV REPAIRING TREATMENT [Suspect]
     Active Substance: BENZOYL PEROXIDE
     Route: 061
     Dates: start: 20080101, end: 20231206

REACTIONS (10)
  - Breast cancer [None]
  - Rash macular [None]
  - Pruritus [None]
  - Skin burning sensation [None]
  - Scar [None]
  - Diarrhoea [None]
  - Nausea [None]
  - Alopecia [None]
  - Erythema [None]
  - Feeling hot [None]
